FAERS Safety Report 10222973 (Version 1)
Quarter: 2014Q2

REPORT INFORMATION
  Report Type: Spontaneous
  Country: FR (occurrence: FR)
  Receive Date: 20140607
  Receipt Date: 20140607
  Transmission Date: 20141212
  Serious: Yes (Death, Other)
  Sender: FDA-Public Use
  Company Number: PHHY2014FR068125

PATIENT
  Age: 33 Year
  Sex: Female

DRUGS (5)
  1. CARBOPLATIN [Suspect]
     Indication: METASTASES TO LIVER
     Dosage: UNK UKN, UNK
  2. TRASTUZUMAB [Suspect]
     Indication: METASTASES TO LIVER
     Dosage: UNK UKN, UNK
  3. RADIOTHERAPY [Suspect]
     Indication: METASTASES TO LIVER
  4. CYCLOPHOSPHAMIDE [Concomitant]
     Indication: INVASIVE DUCTAL BREAST CARCINOMA
     Dosage: UNK UKN, UNK
     Dates: start: 201006
  5. METHOTREXATE [Concomitant]
     Indication: INVASIVE DUCTAL BREAST CARCINOMA
     Dosage: UNK UKN, UNK
     Dates: start: 201006

REACTIONS (2)
  - Death [Fatal]
  - Drug ineffective [Unknown]
